FAERS Safety Report 19469145 (Version 1)
Quarter: 2021Q2

REPORT INFORMATION
  Report Type: Spontaneous
  Country: FR (occurrence: FR)
  Receive Date: 20210628
  Receipt Date: 20210628
  Transmission Date: 20210717
  Serious: Yes (Other)
  Sender: FDA-Public Use
  Company Number: FR-US-PROVELL PHARMACEUTICALS LLC-9247250

PATIENT
  Age: 43 Year
  Sex: Female

DRUGS (2)
  1. LEVOTHYROX [Suspect]
     Active Substance: LEVOTHYROXINE
     Indication: POST PROCEDURAL HYPOTHYROIDISM
     Dates: start: 201703
  2. LEVOTHYROX [Suspect]
     Active Substance: LEVOTHYROXINE
     Dosage: OLD FORMULATION FROM SPAIN IN MID?NOVEMBER (UNSPECIFIED YEAR)

REACTIONS (17)
  - Weight increased [Unknown]
  - Hypertrichosis [Unknown]
  - Depression [Unknown]
  - Photophobia [Unknown]
  - Suicidal ideation [Unknown]
  - Dyspnoea [Recovered/Resolved]
  - Tinnitus [Unknown]
  - Myalgia [Recovered/Resolved]
  - Negative thoughts [Recovering/Resolving]
  - General physical health deterioration [Recovering/Resolving]
  - Headache [Recovered/Resolved]
  - Aggression [Unknown]
  - Dizziness [Recovering/Resolving]
  - Alopecia [Recovering/Resolving]
  - Fatigue [Unknown]
  - Amnesia [Recovering/Resolving]
  - Aphasia [Unknown]
